FAERS Safety Report 9707892 (Version 1)
Quarter: 2013Q4

REPORT INFORMATION
  Report Type: Spontaneous
  Country: SE (occurrence: SE)
  Receive Date: 20131125
  Receipt Date: 20131125
  Transmission Date: 20140711
  Serious: Yes (Hospitalization)
  Sender: FDA-Public Use
  Company Number: SE-ASTRAZENECA-2013SE85058

PATIENT
  Sex: Male

DRUGS (1)
  1. BRILIQUE [Suspect]
     Route: 048

REACTIONS (1)
  - Injury [Unknown]
